FAERS Safety Report 19711650 (Version 1)
Quarter: 2021Q3

REPORT INFORMATION
  Report Type: Report from Study
  Country: US (occurrence: US)
  Receive Date: 20210816
  Receipt Date: 20210816
  Transmission Date: 20211014
  Serious: No
  Sender: FDA-Public Use
  Company Number: US-TG THERAPEUTICS INC.-TGT001971

PATIENT
  Age: 56 Year
  Sex: Male
  Weight: 89.34 kg

DRUGS (18)
  1. HYDROXYZINE [Concomitant]
     Active Substance: HYDROXYZINE HYDROCHLORIDE
  2. VALACYCLOVIR HCL [Concomitant]
     Active Substance: VALACYCLOVIR HYDROCHLORIDE
     Dosage: 500 MILLIGRAM
  3. ZINC. [Concomitant]
     Active Substance: ZINC
  4. UMBRALISIB [Suspect]
     Active Substance: UMBRALISIB
     Indication: FOLLICULAR LYMPHOMA
     Dosage: 800 MILLIGRAM, QD
     Route: 048
     Dates: start: 20210503
  5. LOSARTAN POTASSIUM. [Concomitant]
     Active Substance: LOSARTAN POTASSIUM
  6. MAGNESIUM [Concomitant]
     Active Substance: MAGNESIUM
  7. CALCIUM [Concomitant]
     Active Substance: CALCIUM
  8. IPRATROPIUM/ALBUTEROL [Concomitant]
     Active Substance: ALBUTEROL\IPRATROPIUM
  9. METFORMIN [Concomitant]
     Active Substance: METFORMIN HYDROCHLORIDE
  10. BREO ELLIPTA [Concomitant]
     Active Substance: FLUTICASONE FUROATE\VILANTEROL TRIFENATATE
     Dosage: 100MCG/25MCG
  11. OMEPRAZOLE. [Concomitant]
     Active Substance: OMEPRAZOLE
  12. PREGABALIN. [Concomitant]
     Active Substance: PREGABALIN
     Dosage: 75 MILLIGRAM
  13. VITAMIN D3 [Concomitant]
     Active Substance: CHOLECALCIFEROL
  14. ONE A DAY MEN^S [Concomitant]
     Active Substance: VITAMINS
  15. SULFAMETHOXAZOLE [Concomitant]
     Active Substance: SULFAMETHOXAZOLE
  16. DOCUSATE [Concomitant]
     Active Substance: DOCUSATE
     Dosage: 100 MILLIGRAM
  17. MIRALAX [Concomitant]
     Active Substance: POLYETHYLENE GLYCOL 3350
  18. MUCINEX [Concomitant]
     Active Substance: GUAIFENESIN

REACTIONS (9)
  - Faeces pale [Unknown]
  - Muscle spasms [Unknown]
  - Product dose omission issue [Unknown]
  - Abdominal discomfort [Unknown]
  - Glossodynia [Unknown]
  - Nausea [Unknown]
  - Dysphonia [Unknown]
  - Hot flush [Unknown]
  - Fatigue [Unknown]
